FAERS Safety Report 7785767-7 (Version None)
Quarter: 2011Q3

REPORT INFORMATION
  Report Type: 
  Country: None (occurrence: None)
  Receive Date: 20110929
  Receipt Date: 20110922
  Transmission Date: 20111222
  Serious: Yes (Life-Threatening, Hospitalization)
  Sender: FDA-Public Use
  Company Number: JP-BRISTOL-MYERS SQUIBB COMPANY-16042582

PATIENT
  Age: 47 Year
  Sex: Female
  Weight: 45 kg

DRUGS (2)
  1. ABILIFY [Suspect]
     Indication: SCHIZOPHRENIA
     Dosage: ABILIFY TABS 6MG
     Route: 048
     Dates: end: 20110901
  2. ROHYPNOL [Concomitant]
     Dosage: TABS
     Route: 048
     Dates: end: 20110901

REACTIONS (3)
  - ILEUS PARALYTIC [None]
  - PYREXIA [None]
  - RHABDOMYOLYSIS [None]
